FAERS Safety Report 19024356 (Version 3)
Quarter: 2021Q2

REPORT INFORMATION
  Report Type: Spontaneous
  Country: GB (occurrence: GB)
  Receive Date: 20210317
  Receipt Date: 20210416
  Transmission Date: 20210717
  Serious: Yes (Hospitalization, Other)
  Sender: FDA-Public Use
  Company Number: GB-BAXTER-2021BAX004898

PATIENT
  Age: 69 Year
  Sex: Female
  Weight: 59.2 kg

DRUGS (28)
  1. DOXIL [Suspect]
     Active Substance: DOXORUBICIN HYDROCHLORIDE
     Indication: OVARIAN CANCER
     Dosage: 1CYCLE, DOSAGE FORM: 50 MG/25 ML?CAELYX  DILUTED WITH 5% GLUCOSE
     Route: 065
     Dates: start: 20201221
  2. GLUCOSE 5% INTRAVENOUS INFUSION BP [Suspect]
     Active Substance: DEXTROSE
     Dosage: 4TH CYCLE ?CAELYX 50 MG DILUTED WITH  5% GLUCOSE 250ML GIVEN OVER 1 HR
     Route: 065
     Dates: start: 20210215, end: 20210215
  3. SERTRALINE [Concomitant]
     Active Substance: SERTRALINE HYDROCHLORIDE
     Indication: DEPRESSION
     Dosage: ONGOING
     Route: 048
  4. MOVICOL [Concomitant]
     Active Substance: POLYETHYLENE GLYCOL 3350\POTASSIUM CHLORIDE\SODIUM BICARBONATE\SODIUM CHLORIDE
     Indication: CONSTIPATION
     Dosage: 1 SACHET, ONGOING
     Route: 048
     Dates: start: 20210305
  5. DEXAMETHASONE. [Concomitant]
     Active Substance: DEXAMETHASONE
     Route: 048
     Dates: start: 20210220, end: 20210221
  6. LANSOPRAZOLE. [Concomitant]
     Active Substance: LANSOPRAZOLE
     Indication: GASTROOESOPHAGEAL REFLUX DISEASE
     Route: 048
     Dates: start: 20210215, end: 20210305
  7. DOXIL [Suspect]
     Active Substance: DOXORUBICIN HYDROCHLORIDE
     Dosage: 2ND AND 3RD CYCLE; DOSAGE FORM: 50 MG/25 ML?CAELYX  DILUTED WITH GLUCOSE 5%
     Route: 065
  8. GLUCOSE 5% INTRAVENOUS INFUSION BP [Suspect]
     Active Substance: DEXTROSE
     Indication: MEDICATION DILUTION
     Dosage: 1ST CYCLE ?CAELYX DILUTED WITH  5% GLUCOSE
     Route: 065
     Dates: start: 20201221
  9. GLUCOSE 5% INTRAVENOUS INFUSION BP [Suspect]
     Active Substance: DEXTROSE
     Dosage: 1ST CYCLE, CARBOPLATIN DILUTED WITH 5% GLUCOSE
     Route: 065
     Dates: start: 20201221
  10. GLUCOSE 5% INTRAVENOUS INFUSION BP [Suspect]
     Active Substance: DEXTROSE
     Dosage: 2ND AND 3RD CYCLE, CARBOPLATIN DILUTED WITH 5% GLUCOSE
     Route: 065
  11. SENNA [Concomitant]
     Active Substance: SENNA LEAF\SENNOSIDES\SENNOSIDES A AND B
     Indication: CONSTIPATION
     Dosage: ONGOING
     Route: 048
     Dates: start: 20210305
  12. ONDANSETRON [Concomitant]
     Active Substance: ONDANSETRON
     Indication: VOMITING
     Route: 048
     Dates: start: 20210216, end: 20210217
  13. CARBOPLATIN. [Suspect]
     Active Substance: CARBOPLATIN
     Dosage: 4TH CYCLE; DOSAGE FORM: 600 MG/60 ML?CARBOPLATIN 330MG DILUTED 5% GLUCOSE 500 ML GIVEN OVER 1 HOUR
     Route: 065
     Dates: start: 20210215, end: 20210215
  14. BISOPROLOL [Concomitant]
     Active Substance: BISOPROLOL
     Indication: HYPERTENSION
     Dosage: ONGOING
     Route: 048
  15. ONDANSETRON [Concomitant]
     Active Substance: ONDANSETRON
     Indication: NAUSEA
  16. DOXIL [Suspect]
     Active Substance: DOXORUBICIN HYDROCHLORIDE
     Dosage: 4TH CYCLE; DOSAGE FORM: 50 MG/25 ML?CAELYX 50 MG DILUTED WITH  5% GLUCOSE 250ML GIVEN OVER 1 HR
     Route: 065
     Dates: start: 20210215, end: 20210215
  17. CARBOPLATIN. [Suspect]
     Active Substance: CARBOPLATIN
     Dosage: 2ND AND 3RD CYCLES; DOSAGE FORM: 600 MG/60 ML?CARBOPLATIN  DILUTED 5% GLUCOSE
     Route: 065
  18. CYCLIZINE [Concomitant]
     Active Substance: CYCLIZINE
     Indication: VOMITING
     Dosage: UP TO 3 TIMES A DAY AS REQUIRED, ONGOING
     Route: 048
     Dates: start: 20201116
  19. CYCLIZINE [Concomitant]
     Active Substance: CYCLIZINE
     Indication: NAUSEA
  20. DIGOXIN. [Concomitant]
     Active Substance: DIGOXIN
     Indication: ATRIAL FIBRILLATION
     Dosage: ONGOING
     Route: 048
  21. RIVAROXABAN [Concomitant]
     Active Substance: RIVAROXABAN
     Indication: ATRIAL FIBRILLATION
     Route: 048
     Dates: end: 20210305
  22. GLUCOSE 5% INTRAVENOUS INFUSION BP [Suspect]
     Active Substance: DEXTROSE
     Dosage: 2ND AND 3RD CYCLE ?CAELYX DILUTED WITH  5% GLUCOSE
     Route: 065
  23. CARBOPLATIN. [Suspect]
     Active Substance: CARBOPLATIN
     Indication: OVARIAN CANCER
     Dosage: 1ST CYCLE; DOSAGE FORM: 600 MG/60 ML?CARBOPLATIN DILUTED 5% GLUCOSE
     Route: 065
     Dates: start: 20201221
  24. GLUCOSE 5% INTRAVENOUS INFUSION BP [Suspect]
     Active Substance: DEXTROSE
     Dosage: 4TH CYCLE, CARBOPLATIN 330MG DILUTED WITH 5% GLUCOSE 500 ML GIVEN OVER 1 HOUR
     Route: 065
     Dates: start: 20210215, end: 20210215
  25. AMLODIPINE [Concomitant]
     Active Substance: AMLODIPINE BESYLATE
     Indication: HYPERTENSION
     Dosage: ONGOING
     Route: 048
  26. BISOPROLOL [Concomitant]
     Active Substance: BISOPROLOL
     Indication: ATRIAL FIBRILLATION
  27. DEXAMETHASONE. [Concomitant]
     Active Substance: DEXAMETHASONE
     Indication: VOMITING
     Route: 048
     Dates: start: 20210216, end: 20210217
  28. DEXAMETHASONE. [Concomitant]
     Active Substance: DEXAMETHASONE
     Indication: NAUSEA
     Route: 048
     Dates: start: 20210218, end: 20210219

REACTIONS (3)
  - Thrombocytopenia [Recovering/Resolving]
  - Myelosuppression [Unknown]
  - Anaemia [Recovering/Resolving]

NARRATIVE: CASE EVENT DATE: 20210305
